FAERS Safety Report 8620840-2 (Version None)
Quarter: 2012Q3

REPORT INFORMATION
  Report Type: 
  Country: None (occurrence: None)
  Receive Date: 20120824
  Receipt Date: 20120820
  Transmission Date: 20120928
  Serious: Yes (Disabling)
  Sender: FDA-Public Use
  Company Number: PHHY2012GB071942

PATIENT
  Age: 77 Year
  Sex: Female
  Weight: 86 kg

DRUGS (1)
  1. MIRTAZAPINE [Suspect]
     Dosage: UNK
     Dates: end: 20120620

REACTIONS (2)
  - DYSPHAGIA [None]
  - TARDIVE DYSKINESIA [None]
